FAERS Safety Report 11655308 (Version 3)
Quarter: 2015Q4

REPORT INFORMATION
  Report Type: Spontaneous
  Country: JP (occurrence: JP)
  Receive Date: 20151023
  Receipt Date: 20151229
  Transmission Date: 20160304
  Serious: Yes (Life-Threatening, Other)
  Sender: FDA-Public Use
  Company Number: JP-ASTELLAS-2015JP021032

PATIENT
  Age: 35 Year
  Sex: Female
  Weight: 50 kg

DRUGS (61)
  1. PROGRAF [Suspect]
     Active Substance: TACROLIMUS\TACROLIMUS ANHYDROUS
     Dosage: 1.5 MG AT 9:00, 1.0 MG AT 21:00, TWICE DAILY
     Route: 048
     Dates: start: 20140401, end: 20140401
  2. LORAZEPAM. [Concomitant]
     Active Substance: LORAZEPAM
     Dosage: 0.5 MG, ONCE DAILY
     Route: 048
     Dates: start: 20140418
  3. JZOLOFT [Concomitant]
     Active Substance: SERTRALINE HYDROCHLORIDE
     Indication: DEPRESSION
     Dosage: 25 MG, ONCE DAILY, AT BED TIME
     Route: 048
     Dates: start: 20140331, end: 20140413
  4. ENTERONON-R [Concomitant]
     Active Substance: PROBIOTICS NOS
     Dosage: 1 G, TWICE DAILY, IN THE MORNING, THE DAY
     Route: 048
     Dates: start: 20140422, end: 20140422
  5. VALIXA [Concomitant]
     Active Substance: VALGANCICLOVIR
     Indication: PRODUCT USED FOR UNKNOWN INDICATION
     Dosage: 900 MG, TWICE DAILY, IN THE DAY
     Route: 065
     Dates: start: 20140405, end: 20140416
  6. LASIX [Concomitant]
     Active Substance: FUROSEMIDE
     Indication: PRODUCT USED FOR UNKNOWN INDICATION
     Route: 065
     Dates: start: 20140405, end: 20140405
  7. LASIX [Concomitant]
     Active Substance: FUROSEMIDE
     Dates: start: 20140415, end: 20140507
  8. PROGRAF [Suspect]
     Active Substance: TACROLIMUS\TACROLIMUS ANHYDROUS
     Dosage: 1 MG AT 9:00, 2 MG AT 21:00, TWICE DAILY
     Route: 048
     Dates: start: 20140411, end: 20140412
  9. LOXONIN [Concomitant]
     Active Substance: LOXOPROFEN SODIUM
     Route: 065
     Dates: start: 20140405, end: 20140413
  10. LASIX [Concomitant]
     Active Substance: FUROSEMIDE
     Route: 065
     Dates: start: 20140406, end: 20140406
  11. PROGRAF [Suspect]
     Active Substance: TACROLIMUS\TACROLIMUS ANHYDROUS
     Dosage: UNK UNK, TWICE DAILY
     Route: 048
     Dates: start: 20140406, end: 20140406
  12. PROGRAF [Suspect]
     Active Substance: TACROLIMUS\TACROLIMUS ANHYDROUS
     Dosage: 1 MG AT 9:00, 0.5 MG AT 21:00, TWICE DAILY
     Route: 048
     Dates: start: 20140409, end: 20140409
  13. PROGRAF [Suspect]
     Active Substance: TACROLIMUS\TACROLIMUS ANHYDROUS
     Dosage: 1 MG AT 9:00, 1 MG AT 21:00, TWICE DAILY
     Route: 048
     Dates: start: 20140507, end: 20140507
  14. PROGRAF [Suspect]
     Active Substance: TACROLIMUS\TACROLIMUS ANHYDROUS
     Dosage: UNK UNK, TWICE DAILY
     Route: 048
     Dates: start: 20140602, end: 20140608
  15. PROGRAF [Suspect]
     Active Substance: TACROLIMUS\TACROLIMUS ANHYDROUS
     Dosage: 1 MG AT 9:00, 1.5 MG AT 21:00, TWICE DAILY
     Route: 048
     Dates: start: 20140426, end: 20140428
  16. CLINORIL [Concomitant]
     Active Substance: SULINDAC
     Route: 048
     Dates: start: 20140429, end: 20140504
  17. CLINORIL [Concomitant]
     Active Substance: SULINDAC
     Dosage: ARBITRARILY, UNKNOWN FREQ.
     Route: 048
     Dates: start: 20140522, end: 20140525
  18. CLINORIL [Concomitant]
     Active Substance: SULINDAC
     Route: 048
     Dates: start: 20140526, end: 20140526
  19. LORAZEPAM. [Concomitant]
     Active Substance: LORAZEPAM
     Indication: DEPRESSION
     Dosage: 0.5 MG, ONCE DAILY, IN THE MORNING, THE DAY, THE EVENING
     Route: 048
     Dates: start: 20140404, end: 20140413
  20. LORAZEPAM. [Concomitant]
     Active Substance: LORAZEPAM
     Dosage: 0.5 MG, TWICE DAILY
     Route: 048
     Dates: start: 20140417, end: 20140417
  21. LASIX [Concomitant]
     Active Substance: FUROSEMIDE
     Route: 065
     Dates: start: 20140407, end: 20140413
  22. PROGRAF [Suspect]
     Active Substance: TACROLIMUS\TACROLIMUS ANHYDROUS
     Dosage: 0.5 MG AT 9:00, 1.5 MG AT 21:00, TWICE DAILY
     Route: 048
     Dates: start: 20140405, end: 20140405
  23. PROGRAF [Suspect]
     Active Substance: TACROLIMUS\TACROLIMUS ANHYDROUS
     Dosage: 1.0 MG, TWICE DAILY
     Route: 048
     Dates: start: 20140508, end: 20140511
  24. PROGRAF [Suspect]
     Active Substance: TACROLIMUS\TACROLIMUS ANHYDROUS
     Dosage: 1.0 MG, TWICE DAILY
     Route: 048
     Dates: start: 20140512, end: 20140514
  25. CLINORIL [Concomitant]
     Active Substance: SULINDAC
     Dosage: ARBITRARILY, WHEN THE PAIN, AS NEEDED
     Route: 048
     Dates: start: 20140527, end: 20140601
  26. JZOLOFT [Concomitant]
     Active Substance: SERTRALINE HYDROCHLORIDE
     Route: 048
     Dates: start: 20140528, end: 20140607
  27. CELLCEPT [Concomitant]
     Active Substance: MYCOPHENOLATE MOFETIL\MYCOPHENOLATE MOFETIL HYDROCHLORIDE
     Indication: LUNG TRANSPLANT
     Dosage: 500 MG AT 9:00 (AT 7:00 ON 12-MAY-2014), 500 MG AT 21:00, TWICE DAILY
     Route: 048
     Dates: start: 20140331
  28. PROGRAF [Suspect]
     Active Substance: TACROLIMUS\TACROLIMUS ANHYDROUS
     Indication: LUNG TRANSPLANT REJECTION
     Dosage: 3.0 MG AT 9:00, 1.5 MG AT 21:00, TWICE DAILY
     Route: 048
     Dates: start: 20140331, end: 20140331
  29. PROGRAF [Suspect]
     Active Substance: TACROLIMUS\TACROLIMUS ANHYDROUS
     Dosage: UNK UNK, TWICE DAILY
     Route: 048
     Dates: start: 20140404, end: 20140404
  30. PROGRAF [Suspect]
     Active Substance: TACROLIMUS\TACROLIMUS ANHYDROUS
     Indication: LUNG TRANSPLANT
     Dosage: 2 MG AT 9:00, 1.5 MG AT 21:00, TWICE DAILY
     Route: 048
     Dates: start: 20140414, end: 20140423
  31. PROGRAF [Suspect]
     Active Substance: TACROLIMUS\TACROLIMUS ANHYDROUS
     Dosage: 2 MG AT 9:00, 1 MG AT 21:00, TWICE DAILY
     Route: 048
     Dates: start: 20140424, end: 20140424
  32. CLINORIL [Concomitant]
     Active Substance: SULINDAC
     Route: 048
     Dates: start: 20140414, end: 20140427
  33. TAKEPRON [Concomitant]
     Active Substance: LANSOPRAZOLE
     Indication: PROPHYLAXIS AGAINST GASTROINTESTINAL ULCER
     Dosage: 15 MG, ONCE DAILY, IN THE MORNING
     Route: 048
     Dates: start: 20140405, end: 20140413
  34. VALIXA [Concomitant]
     Active Substance: VALGANCICLOVIR
     Route: 065
     Dates: start: 20140417, end: 20140519
  35. VALIXA [Concomitant]
     Active Substance: VALGANCICLOVIR
     Route: 065
     Dates: start: 20140521, end: 20140615
  36. PROGRAF [Suspect]
     Active Substance: TACROLIMUS\TACROLIMUS ANHYDROUS
     Dosage: 0.5 MG, TWICE DAILY
     Route: 048
     Dates: start: 20140403, end: 20140403
  37. PROGRAF [Suspect]
     Active Substance: TACROLIMUS\TACROLIMUS ANHYDROUS
     Dosage: UNK UNK, TWICE DAILY
     Route: 048
     Dates: start: 20140410, end: 20140410
  38. PROGRAF [Suspect]
     Active Substance: TACROLIMUS\TACROLIMUS ANHYDROUS
     Route: 048
     Dates: start: 20140505, end: 20140506
  39. PROGRAF [Suspect]
     Active Substance: TACROLIMUS\TACROLIMUS ANHYDROUS
     Dosage: 1 MG AT 9:00, 1 MG AT 21:00, TWICE DAILY
     Route: 048
     Dates: start: 20140425, end: 20140425
  40. PROGRAF [Suspect]
     Active Substance: TACROLIMUS\TACROLIMUS ANHYDROUS
     Dosage: UNK UNK, TWICE DAILY
     Route: 048
     Dates: start: 20140515, end: 20140522
  41. ZOSYN [Concomitant]
     Active Substance: PIPERACILLIN SODIUM\TAZOBACTAM SODIUM
     Indication: LUNG TRANSPLANT
     Route: 041
     Dates: start: 20140327, end: 20140416
  42. FUNGUARD [Concomitant]
     Active Substance: MICAFUNGIN SODIUM
     Indication: LUNG TRANSPLANT
     Route: 041
     Dates: start: 20140406, end: 20140423
  43. CLINORIL [Concomitant]
     Active Substance: SULINDAC
     Indication: LUNG TRANSPLANT
     Dosage: 100 MG, ONCE DAILY, IN THE DAY
     Route: 048
     Dates: start: 20140404, end: 20140404
  44. CLINORIL [Concomitant]
     Active Substance: SULINDAC
     Route: 048
     Dates: start: 20140428, end: 20140428
  45. LORAZEPAM. [Concomitant]
     Active Substance: LORAZEPAM
     Dosage: 0.5 MG, THRICE DAILY
     Route: 048
     Dates: start: 20140414, end: 20140416
  46. LOXONIN [Concomitant]
     Active Substance: LOXOPROFEN SODIUM
     Indication: PRODUCT USED FOR UNKNOWN INDICATION
     Route: 065
     Dates: start: 20140404, end: 20140404
  47. METHYLPREDNISOLONE SODIUM PHOSPHATE [Concomitant]
     Active Substance: METHYLPREDNISOLONE SODIUM PHOSPHATE
     Indication: LUNG TRANSPLANT REJECTION
     Route: 065
     Dates: start: 20140406, end: 20140407
  48. PROGRAF [Suspect]
     Active Substance: TACROLIMUS\TACROLIMUS ANHYDROUS
     Indication: LUNG TRANSPLANT
     Dosage: 3.0 MG AT 9:00, 3 MG AT 21:00, TWICE DAILY
     Route: 048
     Dates: start: 20140330, end: 20140330
  49. PROGRAF [Suspect]
     Active Substance: TACROLIMUS\TACROLIMUS ANHYDROUS
     Dosage: 1.0 MG, TWICE DAILY
     Route: 048
     Dates: start: 20140523, end: 20140601
  50. STRONGER NEO-MINOPHAGEN C [Concomitant]
     Active Substance: AMMONIUM GLYCYRRHIZATE\CYSTEINE HYDROCHLORIDE\GLYCINE
     Indication: HEPATIC FUNCTION ABNORMAL
     Route: 041
     Dates: start: 20140403, end: 20140421
  51. HANP [Concomitant]
     Active Substance: CARPERITIDE
     Indication: LUNG TRANSPLANT
     Route: 041
     Dates: start: 20140327, end: 20140417
  52. METHYLPREDNISOLONE. [Concomitant]
     Active Substance: METHYLPREDNISOLONE
     Indication: LUNG TRANSPLANT REJECTION
     Route: 041
     Dates: start: 20140406, end: 20140407
  53. PROGRAF [Suspect]
     Active Substance: TACROLIMUS\TACROLIMUS ANHYDROUS
     Dosage: 1 MG AT 9:00, 0.5 MG AT 21:00, TWICE DAILY
     Route: 048
     Dates: start: 20140402, end: 20140402
  54. PROGRAF [Suspect]
     Active Substance: TACROLIMUS\TACROLIMUS ANHYDROUS
     Route: 048
     Dates: start: 20140407, end: 20140408
  55. PROGRAF [Suspect]
     Active Substance: TACROLIMUS\TACROLIMUS ANHYDROUS
     Dosage: UNK UNK, TWICE DAILY
     Route: 048
     Dates: start: 20140413, end: 20140413
  56. PROGRAF [Suspect]
     Active Substance: TACROLIMUS\TACROLIMUS ANHYDROUS
     Route: 048
     Dates: start: 20140429, end: 20140504
  57. PROGRAF [Suspect]
     Active Substance: TACROLIMUS\TACROLIMUS ANHYDROUS
     Dosage: UNK UNK, TWICE DAILY
     Route: 048
     Dates: start: 20140609, end: 20140612
  58. CLINORIL [Concomitant]
     Active Substance: SULINDAC
     Route: 048
     Dates: start: 20140505, end: 20140521
  59. JZOLOFT [Concomitant]
     Active Substance: SERTRALINE HYDROCHLORIDE
     Route: 048
     Dates: start: 20140415, end: 20140526
  60. TAKEPRON [Concomitant]
     Active Substance: LANSOPRAZOLE
     Route: 048
     Dates: start: 20140415
  61. ENTERONON-R [Concomitant]
     Active Substance: PROBIOTICS NOS
     Indication: ENTEROCOLITIS
     Route: 048
     Dates: start: 20140404, end: 20140421

REACTIONS (2)
  - Transplant rejection [Recovered/Resolved]
  - Prinzmetal angina [Recovered/Resolved]

NARRATIVE: CASE EVENT DATE: 20140406
